FAERS Safety Report 10420180 (Version 1)
Quarter: 2014Q3

REPORT INFORMATION
  Report Type: Report from Study
  Country: US (occurrence: None)
  Receive Date: 20140804
  Receipt Date: 20140804
  Transmission Date: 20150326
  Serious: Yes (Hospitalization)
  Sender: FDA-Public Use
  Company Number: 2013US008714

PATIENT
  Age: 64 Year
  Sex: Male
  Weight: 93 kg

DRUGS (22)
  1. TIZANIDINE (TIZANIDINE) [Concomitant]
     Active Substance: TIZANIDINE
  2. XOLAIR [Concomitant]
     Active Substance: OMALIZUMAB
  3. AMLODIPINE [Concomitant]
     Active Substance: AMLODIPINE BESYLATE
  4. GLYBURIDE (GLIBENCLAMIDE) [Concomitant]
     Active Substance: GLYBURIDE
  5. MARINOL [Concomitant]
     Active Substance: DRONABINOL
  6. LUNESTA [Concomitant]
     Active Substance: ESZOPICLONE
  7. ALLEGRA (FEXOFNADINE HYDROCHLORIDE) [Concomitant]
  8. ZYFLO (ZILEUTON) [Concomitant]
  9. PROMETHAZINE [Concomitant]
     Active Substance: PROMETHAZINE\PROMETHAZINE HYDROCHLORIDE
  10. ALBUTEROL (SALBUTAMOL) [Concomitant]
     Active Substance: ALBUTEROL
  11. GABAPENTIN (GABAPENTIN) [Concomitant]
     Active Substance: GABAPENTIN
  12. LYRICA [Concomitant]
     Active Substance: PREGABALIN
  13. ALLERGY (DIPHENHYDRAMINE HYDROCHLORIDE) [Concomitant]
     Active Substance: DIPHENHYDRAMINE HYDROCHLORIDE
  14. GLASSIA [Suspect]
     Active Substance: .ALPHA.1-PROTEINASE INHIBITOR HUMAN
     Indication: ALPHA-1 ANTI-TRYPSIN DEFICIENCY
     Route: 042
     Dates: start: 201210
  15. CITALOPRAM (CITALOPRAM) [Concomitant]
     Active Substance: CITALOPRAM HYDROBROMIDE
  16. HYDROMORPHONE (HYDROMORPHONE) [Concomitant]
     Active Substance: HYDROMORPHONE
  17. NAPROXEN (NAPROXEN) [Concomitant]
     Active Substance: NAPROXEN
  18. DIOVAN [Concomitant]
     Active Substance: VALSARTAN
  19. CARVEDILOL (CARVEDILOL) [Concomitant]
     Active Substance: CARVEDILOL
  20. OMEPRAZOLE (OMEPRAZOLE) [Concomitant]
     Active Substance: OMEPRAZOLE
  21. XOPENEX (LEVOSALBUTAMOL HYDROCHLORIDE) [Concomitant]
  22. ASPIRIN (ACETYLSALICYLIC ACID) [Concomitant]
     Active Substance: ASPIRIN

REACTIONS (15)
  - Chest pain [None]
  - Oxygen saturation decreased [None]
  - Wheezing [None]
  - Blood pressure inadequately controlled [None]
  - Leukocytosis [None]
  - Dysphonia [None]
  - Drug administration error [None]
  - Pulmonary congestion [None]
  - Musculoskeletal pain [None]
  - Dyspnoea [None]
  - Cough [None]
  - Pneumonia [None]
  - Lung infiltration [None]
  - Fatigue [None]
  - Pleuritic pain [None]

NARRATIVE: CASE EVENT DATE: 20121224
